FAERS Safety Report 5087843-9 (Version None)
Quarter: 2006Q3

REPORT INFORMATION
  Report Type: 
  Country: None (occurrence: None)
  Receive Date: 20060824
  Receipt Date: 20060821
  Transmission Date: 20061208
  Serious: Yes (Other)
  Sender: FDA-Public Use
  Company Number: GB-JNJFOC-20060800760

PATIENT
  Sex: Female

DRUGS (1)
  1. CILEST [Suspect]
     Indication: CONTRACEPTION
     Dosage: NO EVENTS OR DEVIATIONS WERE REPORTED. THE BATCH WAS MANUFACTURED ACCORDING TO THE REQUIREMENTS.
     Route: 048

REACTIONS (1)
  - ENDOMETRIOSIS [None]
